FAERS Safety Report 4815032-9 (Version None)
Quarter: 2005Q4

REPORT INFORMATION
  Report Type: 
  Country: None (occurrence: None)
  Receive Date: 20051026
  Receipt Date: 20051007
  Transmission Date: 20060501
  Serious: Yes (Death, Life-Threatening, Hospitalization)
  Sender: FDA-Public Use
  Company Number: EWC051046093

PATIENT
  Age: 52 Year
  Sex: Female

DRUGS (4)
  1. XIGRIS [Suspect]
     Indication: SEPSIS
     Dates: start: 20050927, end: 20050927
  2. SEDATIVE [Suspect]
  3. MUSCLE RELAXANT [Concomitant]
  4. ANTIBIOTIC [Concomitant]

REACTIONS (9)
  - ACTIVATED PARTIAL THROMBOPLASTIN TIME [None]
  - ACTIVATED PARTIAL THROMBOPLASTIN TIME PROLONGED [None]
  - BLOOD CREATININE INCREASED [None]
  - CEREBRAL HAEMORRHAGE [None]
  - INTERNATIONAL NORMALISED RATIO INCREASED [None]
  - LOSS OF CONSCIOUSNESS [None]
  - MYDRIASIS [None]
  - PERITONEAL DIALYSIS [None]
  - PLATELET COUNT DECREASED [None]
